FAERS Safety Report 24434271 (Version 2)
Quarter: 2025Q3

REPORT INFORMATION
  Report Type: Report from Study
  Country: US (occurrence: US)
  Receive Date: 20241014
  Receipt Date: 20250805
  Transmission Date: 20251021
  Serious: Yes (Other)
  Sender: TAKEDA
  Company Number: US-TAKEDA-2024TUS101948

PATIENT
  Age: 63 Year
  Sex: Female

DRUGS (1)
  1. HUMAN IMMUNOGLOBULIN G [Suspect]
     Active Substance: HUMAN IMMUNOGLOBULIN G
     Indication: Primary immunodeficiency syndrome

REACTIONS (6)
  - Cervical spinal stenosis [Unknown]
  - Autoimmune disorder [Unknown]
  - Multiple sclerosis [Unknown]
  - Interstitial lung disease [Unknown]
  - Lumbar spinal stenosis [Unknown]
  - Limb injury [Unknown]

NARRATIVE: CASE EVENT DATE: 20241011
